FAERS Safety Report 5962449-5 (Version None)
Quarter: 2008Q4

REPORT INFORMATION
  Report Type: 
  Country: None (occurrence: None)
  Receive Date: 20081121
  Receipt Date: 20081113
  Transmission Date: 20090506
  Serious: Yes (Hospitalization, Other)
  Sender: FDA-Public Use
  Company Number: US-PFIZER INC-2006002022

PATIENT
  Sex: Female
  Weight: 63.5 kg

DRUGS (20)
  1. LIPITOR [Suspect]
     Indication: BLOOD CHOLESTEROL INCREASED
  2. NEXIUM [Concomitant]
  3. DIOVAN HCT [Concomitant]
  4. IBANDRONATE SODIUM [Concomitant]
     Dosage: FREQ:ONCE A MONTH
  5. EVISTA [Concomitant]
  6. EPINASTINE [Concomitant]
  7. XOPENEX [Concomitant]
     Dosage: FREQ:AS AND WHEN REQUIRED
  8. PULMICORT-100 [Concomitant]
     Dosage: FREQ:AS AND WHEN REQUIRED
  9. ALBUTEROL [Concomitant]
  10. NASONEX [Concomitant]
  11. VITAMIN B-12 [Concomitant]
  12. LOVAZA [Concomitant]
  13. ASCORBIC ACID [Concomitant]
  14. CITRACAL + D [Concomitant]
  15. ULTRACET [Concomitant]
  16. PLAVIX [Concomitant]
  17. CLINDAMYCIN HCL [Concomitant]
  18. LASIX [Concomitant]
  19. DIOVAN [Concomitant]
  20. ALL OTHER THERAPEUTIC PRODUCTS [Concomitant]

REACTIONS (21)
  - ANAEMIA [None]
  - ARTHRITIS [None]
  - ASTHMA [None]
  - BLOOD POTASSIUM DECREASED [None]
  - BODY HEIGHT DECREASED [None]
  - CEREBROVASCULAR ACCIDENT [None]
  - CHEST PAIN [None]
  - DEHYDRATION [None]
  - DIZZINESS [None]
  - FALL [None]
  - FIBROMYALGIA [None]
  - GLUCOSE TOLERANCE IMPAIRED [None]
  - HYPERSENSITIVITY [None]
  - HYPERTENSION [None]
  - HYPOAESTHESIA [None]
  - INJURY [None]
  - NASOPHARYNGITIS [None]
  - OSTEOPOROSIS [None]
  - TRANSIENT ISCHAEMIC ATTACK [None]
  - UNEVALUABLE EVENT [None]
  - VERTIGO [None]
